FAERS Safety Report 8345392-6 (Version None)
Quarter: 2012Q2

REPORT INFORMATION
  Report Type: 
  Country: None (occurrence: None)
  Receive Date: 20120508
  Receipt Date: 20120503
  Transmission Date: 20120825
  Serious: Yes (Disabling)
  Sender: FDA-Public Use
  Company Number: BR-PFIZER INC-2012108676

PATIENT
  Age: 74 Year
  Sex: Female

DRUGS (5)
  1. NORVASC [Suspect]
     Indication: HYPERTENSION
     Dosage: 5 MG, 1X/DAY
     Route: 048
     Dates: start: 20100415
  2. CARVEDILOL [Concomitant]
     Dosage: 25 MG, UNK
  3. OLMESARTAN MEDOXOMIL AND HYDROCHLOROTHIZIDE [Suspect]
     Indication: HYPERTENSION
     Dosage: 40 MG/12.5 MG, 1X/DAY
     Route: 048
     Dates: start: 20100415
  4. METFORMIN [Concomitant]
     Dosage: 850 MG, UNK
  5. GLIMEPIRIDE [Concomitant]
     Dosage: 4 MG, UNK

REACTIONS (1)
  - CEREBROVASCULAR ACCIDENT [None]
